FAERS Safety Report 19215806 (Version 2)
Quarter: 2021Q2

REPORT INFORMATION
  Report Type: Spontaneous
  Country: US (occurrence: US)
  Receive Date: 20210505
  Receipt Date: 20210514
  Transmission Date: 20210717
  Serious: No
  Sender: FDA-Public Use
  Company Number: US-AMGEN-USASP2021067736

PATIENT
  Age: 45 Year
  Sex: Male

DRUGS (20)
  1. DICYCLOMINE CO [Concomitant]
  2. METOPROLOL. [Concomitant]
     Active Substance: METOPROLOL
  3. PANTOPRAZOLE [Concomitant]
     Active Substance: PANTOPRAZOLE
  4. TAMSULOSIN [Concomitant]
     Active Substance: TAMSULOSIN
  5. TRAMADOL. [Concomitant]
     Active Substance: TRAMADOL
  6. PREDNISONE. [Concomitant]
     Active Substance: PREDNISONE
  7. CLOBETASOL [Concomitant]
     Active Substance: CLOBETASOL
  8. CEFDINIR. [Concomitant]
     Active Substance: CEFDINIR
  9. DULOXETINE. [Concomitant]
     Active Substance: DULOXETINE
  10. IPRATROPIUM/ALBUTEROL [Concomitant]
     Active Substance: ALBUTEROL\IPRATROPIUM
  11. ROSUVASTATIN. [Concomitant]
     Active Substance: ROSUVASTATIN
  12. ASPIRIN [ACETYLSALICYLIC ACID] [Concomitant]
     Active Substance: ASPIRIN
  13. METFORMIN [Concomitant]
     Active Substance: METFORMIN HYDROCHLORIDE
  14. CITALOPRAM [Concomitant]
     Active Substance: CITALOPRAM HYDROBROMIDE
  15. OXYCODONE [Concomitant]
     Active Substance: OXYCODONE
  16. TOUJEO [Concomitant]
     Active Substance: INSULIN GLARGINE
  17. OTEZLA [Suspect]
     Active Substance: APREMILAST
     Indication: PSORIASIS
     Dosage: 30 MILLIGRAM, BID
     Route: 048
     Dates: start: 20210309
  18. FUROSEMIDE. [Concomitant]
     Active Substance: FUROSEMIDE
  19. SUCRALFATE. [Concomitant]
     Active Substance: SUCRALFATE
  20. TRADJENTA [Concomitant]
     Active Substance: LINAGLIPTIN

REACTIONS (1)
  - Fatigue [Not Recovered/Not Resolved]

NARRATIVE: CASE EVENT DATE: 20210429
